FAERS Safety Report 22972400 (Version 3)
Quarter: 2023Q4

REPORT INFORMATION
  Report Type: Spontaneous
  Country: JP (occurrence: JP)
  Receive Date: 20230922
  Receipt Date: 20231218
  Transmission Date: 20240109
  Serious: Yes (Hospitalization, Other)
  Sender: FDA-Public Use
  Company Number: JP-AMGEN-JPNSP2023166279

PATIENT
  Sex: Female

DRUGS (2)
  1. EVENITY [Suspect]
     Active Substance: ROMOSOZUMAB-AQQG
     Indication: Osteoporosis
     Dosage: 210 MILLIGRAM
     Route: 058
  2. EVENITY [Suspect]
     Active Substance: ROMOSOZUMAB-AQQG
     Dosage: 210 MILLIGRAM
     Route: 058
     Dates: start: 20231013

REACTIONS (2)
  - Fall [Unknown]
  - Femoral neck fracture [Recovering/Resolving]
